FAERS Safety Report 4364934-9 (Version None)
Quarter: 2004Q2

REPORT INFORMATION
  Report Type: 
  Country: None (occurrence: None)
  Receive Date: 20040521
  Receipt Date: 20040429
  Transmission Date: 20050107
  Serious: Yes (Other)
  Sender: FDA-Public Use
  Company Number: USA030639745

PATIENT
  Age: 71 Year
  Sex: Female
  Weight: 41 kg

DRUGS (9)
  1. FORTEO [Suspect]
     Indication: OSTEOPOROSIS
  2. FOSAMAX [Concomitant]
  3. MIACALCIN [Concomitant]
  4. PREDNISONE TAB [Concomitant]
  5. ACIPHEX [Concomitant]
  6. IMURAN [Concomitant]
  7. FOLIC ACID [Concomitant]
  8. FLAGYL [Concomitant]
  9. ADVAIR DISKUS 100/50 [Concomitant]

REACTIONS (5)
  - DYSPNOEA [None]
  - FATIGUE [None]
  - PHARMACEUTICAL PRODUCT COMPLAINT [None]
  - SPINAL FRACTURE [None]
  - WEIGHT DECREASED [None]
